FAERS Safety Report 17577707 (Version 1)
Quarter: 2020Q1

REPORT INFORMATION
  Report Type: Spontaneous
  Country: GB (occurrence: GB)
  Receive Date: 20200324
  Receipt Date: 20200324
  Transmission Date: 20200409
  Serious: Yes (Hospitalization)
  Sender: FDA-Public Use
  Company Number: GB-MYLANLABS-2020M1029662

PATIENT
  Age: 43 Year
  Sex: Female
  Weight: 72 kg

DRUGS (3)
  1. NAPROXEN. [Concomitant]
     Active Substance: NAPROXEN
     Dosage: 2 DOSAGE FORM, QD
     Dates: start: 20200120, end: 20200203
  2. OMEPRAZOLE. [Concomitant]
     Active Substance: OMEPRAZOLE
     Dosage: APPROXIMATELY HALF HOUR BEFORE BREAKFAST.
     Dates: start: 20200120, end: 20200217
  3. SUMATRIPTAN. [Suspect]
     Active Substance: SUMATRIPTAN
     Indication: HEADACHE
     Dosage: DOSE MAY BE REPEATED
     Dates: start: 20200120, end: 20200217

REACTIONS (3)
  - Pyrexia [Recovered/Resolved]
  - Essential tremor [Recovered/Resolved]
  - Pneumonia [Unknown]

NARRATIVE: CASE EVENT DATE: 20200120
